FAERS Safety Report 6989289-2 (Version None)
Quarter: 2010Q3

REPORT INFORMATION
  Report Type: 
  Country: None (occurrence: None)
  Receive Date: 20100916
  Receipt Date: 20091116
  Transmission Date: 20110219
  Serious: Yes (Life-Threatening)
  Sender: FDA-Public Use
  Company Number: GB-PFIZER INC-2009286133

PATIENT
  Sex: Male

DRUGS (14)
  1. LYRICA [Suspect]
     Indication: DIABETIC NEUROPATHY
     Dosage: 75 MG, 2X/DAY
     Route: 048
     Dates: start: 20091005, end: 20091009
  2. METFORMIN [Concomitant]
     Dosage: UNK
  3. LANSOPRAZOLE [Concomitant]
     Dosage: UNK
  4. CANDESARTAN [Concomitant]
     Dosage: UNK
  5. BECLOMETHASONE DIPROPIONATE [Concomitant]
     Dosage: UNK
  6. SIMVASTATIN [Concomitant]
     Dosage: UNK
  7. ISMO [Concomitant]
     Dosage: UNK
  8. IPRATROPIUM [Concomitant]
     Dosage: UNK
  9. NICORANDIL [Concomitant]
     Dosage: UNK
  10. DIGOXIN [Concomitant]
     Dosage: UNK
  11. GLICLAZIDE [Concomitant]
     Dosage: UNK
  12. ACETYLSALICYLIC ACID [Concomitant]
     Dosage: UNK
  13. PARACETAMOL [Concomitant]
     Dosage: UNK
  14. BISOPROLOL [Concomitant]
     Dosage: UNK
     Dates: start: 20090926, end: 20091009

REACTIONS (2)
  - ATRIOVENTRICULAR BLOCK [None]
  - NEURALGIA [None]
